FAERS Safety Report 6416220-0 (Version None)
Quarter: 2009Q4

REPORT INFORMATION
  Report Type: 
  Country: None (occurrence: None)
  Receive Date: 20091027
  Receipt Date: 20091016
  Transmission Date: 20100525
  Serious: Yes (Hospitalization)
  Sender: FDA-Public Use
  Company Number: DE-PFIZER INC-2009262531

PATIENT
  Age: 73 Year

DRUGS (1)
  1. VIAGRA [Suspect]
     Indication: ERECTILE DYSFUNCTION
     Dosage: 50 MG, UNK
     Route: 048
     Dates: start: 20000101

REACTIONS (4)
  - ATRIAL FIBRILLATION [None]
  - MUSCLE SPASMS [None]
  - PHOTOPSIA [None]
  - PSORIASIS [None]
